FAERS Safety Report 9014667 (Version 2)
Quarter: 2013Q1

REPORT INFORMATION
  Report Type: Report from Study
  Country: DE (occurrence: DE)
  Receive Date: 20130115
  Receipt Date: 20130205
  Transmission Date: 20140127
  Serious: Yes (Hospitalization)
  Sender: FDA-Public Use
  Company Number: DE-PFIZER INC-2012317615

PATIENT
  Age: 74 Year
  Sex: Female
  Weight: 75 kg

DRUGS (1)
  1. TORISEL [Suspect]
     Indication: MYELODYSPLASTIC SYNDROME
     Dosage: 25 MG, CYCLIC, 2 DAYS
     Dates: start: 20121204, end: 20121211

REACTIONS (1)
  - Neutropenic colitis [Recovering/Resolving]
